FAERS Safety Report 8513746-0 (Version None)
Quarter: 2012Q3

REPORT INFORMATION
  Report Type: 
  Country: None (occurrence: None)
  Receive Date: 20120717
  Receipt Date: 20120715
  Transmission Date: 20120928
  Serious: No
  Sender: FDA-Public Use
  Company Number: US-PFIZER INC-2012170232

PATIENT
  Age: 17 Month
  Sex: Male

DRUGS (1)
  1. PEDIATRIC ADVIL [Suspect]
     Indication: PYREXIA
     Dosage: UNK

REACTIONS (2)
  - PSYCHOMOTOR HYPERACTIVITY [None]
  - POOR QUALITY SLEEP [None]
